FAERS Safety Report 21906008 (Version 1)
Quarter: 2023Q1

REPORT INFORMATION
  Report Type: Report from Study
  Country: BR (occurrence: BR)
  Receive Date: 20230124
  Receipt Date: 20230124
  Transmission Date: 20230418
  Serious: Yes (Hospitalization, Other)
  Sender: FDA-Public Use
  Company Number: BR-JNJFOC-20230138315

PATIENT
  Age: 9 Decade
  Sex: Female
  Weight: 76 kg

DRUGS (1)
  1. REMICADE [Suspect]
     Active Substance: INFLIXIMAB
     Indication: Rheumatoid arthritis
     Route: 041
     Dates: start: 20191031, end: 20220825

REACTIONS (5)
  - Pancreas infection [Unknown]
  - Tuberculosis [Unknown]
  - Pulmonary oedema [Unknown]
  - Pleural effusion [Unknown]
  - COVID-19 [Unknown]
